FAERS Safety Report 6826496-3 (Version None)
Quarter: 2010Q3

REPORT INFORMATION
  Report Type: 
  Country: None (occurrence: None)
  Receive Date: 20100709
  Receipt Date: 20100702
  Transmission Date: 20110219
  Serious: Yes (Other)
  Sender: FDA-Public Use
  Company Number: GB-TEVA-220194ISR

PATIENT
  Age: 16 Year
  Sex: Female

DRUGS (10)
  1. CETIRIZINE HCL [Suspect]
     Indication: SEASONAL ALLERGY
     Dates: start: 20090917, end: 20091013
  2. TRIMETHOPRIM [Suspect]
     Indication: URINARY TRACT INFECTION
     Dates: start: 20090604
  3. CERVARIX [Suspect]
     Indication: PROPHYLAXIS
     Route: 030
     Dates: start: 20091008, end: 20091008
  4. MEDROXYPROGESTERONE ACETATE [Suspect]
     Indication: CONTRACEPTION
     Route: 030
     Dates: start: 20090911
  5. MEDROXYPROGESTERONE ACETATE [Suspect]
     Route: 030
     Dates: start: 20090623
  6. MALATHION [Suspect]
     Indication: ACARODERMATITIS
     Dates: start: 20090623
  7. MALATHION [Suspect]
     Route: 061
     Dates: start: 20090806, end: 20090813
  8. PERMETHRIN [Suspect]
     Route: 061
     Dates: start: 20090917, end: 20090924
  9. FLUCLOXACILLIN [Suspect]
     Indication: ACARODERMATITIS
     Dates: start: 20090710
  10. FUCIDIN H [Suspect]
     Indication: ACARODERMATITIS
     Dates: start: 20090710

REACTIONS (3)
  - DRUG EXPOSURE DURING PREGNANCY [None]
  - LIVE BIRTH [None]
  - PREGNANCY WITH INJECTABLE CONTRACEPTIVE [None]
